FAERS Safety Report 4636313-8 (Version None)
Quarter: 2005Q2

REPORT INFORMATION
  Report Type: 
  Country: None (occurrence: None)
  Receive Date: 20050415
  Receipt Date: 20040903
  Transmission Date: 20051028
  Serious: Yes (Other)
  Sender: FDA-Public Use
  Company Number: US-BRISTOL-MYERS SQUIBB COMPANY-12694352

PATIENT
  Age: 39 Year
  Sex: Female
  Weight: 80 kg

DRUGS (7)
  1. PARAPLATIN [Suspect]
     Indication: BREAST CANCER METASTATIC
     Dosage: THERAPY DATES 14-MAY-2004 TO 27-AUG-2004
     Route: 042
  2. TAXOL [Concomitant]
     Indication: BREAST CANCER METASTATIC
  3. HERCEPTIN [Concomitant]
     Indication: BREAST CANCER METASTATIC
  4. KYTRIL [Concomitant]
     Indication: PREMEDICATION
     Dates: start: 20040827, end: 20040827
  5. DEXAMETHASONE [Concomitant]
     Indication: PREMEDICATION
     Dates: start: 20040827, end: 20040827
  6. RANITIDINE [Concomitant]
     Indication: PREMEDICATION
     Dates: start: 20040827, end: 20040827
  7. BENADRYL [Concomitant]
     Indication: PREMEDICATION
     Dates: start: 20040827, end: 20040827

REACTIONS (1)
  - HYPERSENSITIVITY [None]
